FAERS Safety Report 4333119-4 (Version None)
Quarter: 2004Q2

REPORT INFORMATION
  Report Type: 
  Country: None (occurrence: None)
  Receive Date: 20040406
  Receipt Date: 20040326
  Transmission Date: 20050107
  Serious: Yes (Other)
  Sender: FDA-Public Use
  Company Number: PHBS2004JP04341

PATIENT
  Sex: Male

DRUGS (1)
  1. DIOVAN [Suspect]
     Dosage: 80 MG/DAY
     Route: 048

REACTIONS (1)
  - BLOOD CREATINE PHOSPHOKINASE INCREASED [None]
